FAERS Safety Report 6840387-3 (Version None)
Quarter: 2010Q2

REPORT INFORMATION
  Report Type: 
  Country: None (occurrence: None)
  Receive Date: 20100629
  Receipt Date: 20100305
  Transmission Date: 20101027
  Serious: No
  Sender: FDA-Public Use
  Company Number: US-WYE-H13993410

PATIENT
  Age: 61 Year
  Sex: Female
  Weight: 86.26 kg

DRUGS (2)
  1. PRISTIQ [Suspect]
     Indication: DEPRESSION
     Dosage: 50 MG 1X PER 1 DAY, ORAL
     Route: 048
     Dates: start: 20100201
  2. SYNTHROID [Concomitant]

REACTIONS (3)
  - MEDICATION RESIDUE [None]
  - NAUSEA [None]
  - PARAESTHESIA [None]
